FAERS Safety Report 24185652 (Version 1)
Quarter: 2024Q3

REPORT INFORMATION
  Report Type: Spontaneous
  Country: PK (occurrence: PK)
  Receive Date: 20240807
  Receipt Date: 20240807
  Transmission Date: 20241016
  Serious: Yes (Other)
  Sender: BAUSCH AND LOMB
  Company Number: PK-MLMSERVICE-20240723-PI140387-00283-1

PATIENT
  Age: 49 Year
  Sex: Female

DRUGS (9)
  1. RIBAVIRIN [Suspect]
     Active Substance: RIBAVIRIN
     Indication: Chronic hepatitis C
     Route: 065
  2. INTERFERON ALFA-2B [Suspect]
     Active Substance: INTERFERON ALFA-2B
     Indication: Chronic hepatitis C
     Dosage: PEGYLATED INTERFERON ALPHA 2B
     Route: 058
  3. ENTECAVIR [Suspect]
     Active Substance: ENTECAVIR
     Indication: Hepatitis B
     Route: 065
  4. ENTECAVIR [Suspect]
     Active Substance: ENTECAVIR
     Indication: Prophylaxis
  5. HYDROXYCHLOROQUINE [Concomitant]
     Active Substance: HYDROXYCHLOROQUINE
     Indication: Undifferentiated connective tissue disease
  6. IMURAN [Concomitant]
     Active Substance: AZATHIOPRINE
     Indication: Undifferentiated connective tissue disease
  7. MYCOPHENOLATE MOFETIL [Concomitant]
     Active Substance: MYCOPHENOLATE MOFETIL
     Indication: Undifferentiated connective tissue disease
  8. RITUXIMAB [Concomitant]
     Active Substance: RITUXIMAB
     Indication: Hepatitis B
  9. RITUXIMAB [Concomitant]
     Active Substance: RITUXIMAB
     Indication: Prophylaxis

REACTIONS (1)
  - Excessive dynamic airway collapse [Unknown]
